FAERS Safety Report 11661182 (Version 1)
Quarter: 2015Q4

REPORT INFORMATION
  Report Type: Spontaneous
  Country: CA (occurrence: CA)
  Receive Date: 20151026
  Receipt Date: 20151026
  Transmission Date: 20160304
  Serious: Yes (Hospitalization, Other)
  Sender: FDA-Public Use
  Company Number: CA-IMPAX LABORATORIES, INC-2015-IPXL-01032

PATIENT
  Age: 22 Year
  Sex: Male

DRUGS (11)
  1. OXYCONTIN [Concomitant]
     Active Substance: OXYCODONE HYDROCHLORIDE
     Indication: DRUG ABUSE
     Route: 042
  2. CITALOPRAM [Concomitant]
     Active Substance: CITALOPRAM HYDROBROMIDE
     Indication: ANXIETY
     Dosage: 40 MG, DAILY
     Route: 065
  3. COCAINE [Concomitant]
     Active Substance: COCAINE
     Indication: DRUG ABUSE
     Route: 042
  4. TRAZODONE [Concomitant]
     Active Substance: TRAZODONE HYDROCHLORIDE
     Indication: ANXIETY
     Dosage: 50 MG, BEDTIME
     Route: 065
  5. BUPROPION XL [Suspect]
     Active Substance: BUPROPION
     Indication: MAJOR DEPRESSION
     Dosage: 4500 MG, DAILY
     Route: 042
  6. BUPROPION XL [Suspect]
     Active Substance: BUPROPION
     Indication: DRUG ABUSE
  7. MORPHINE [Concomitant]
     Active Substance: MORPHINE
     Indication: DRUG ABUSE
     Route: 042
  8. HEROIN [Concomitant]
     Active Substance: DIACETYLMORPHINE
     Indication: DRUG ABUSE
     Route: 042
  9. QUETIAPINE [Concomitant]
     Active Substance: QUETIAPINE
     Indication: ANXIETY
     Dosage: 100 MG, BEDTIME
     Route: 065
  10. HYDROMORPHONE [Concomitant]
     Active Substance: HYDROMORPHONE
     Indication: DRUG ABUSE
     Route: 042
  11. CLONAZEPAM. [Concomitant]
     Active Substance: CLONAZEPAM
     Indication: ANXIETY
     Dosage: 1 MG 4 TIMES DAILY AS REQUIRED
     Route: 065

REACTIONS (8)
  - Drug abuse [Unknown]
  - Intentional overdose [Unknown]
  - Euphoric mood [Unknown]
  - Hallucination, visual [Recovered/Resolved]
  - Drug tolerance increased [Unknown]
  - Peripheral venous disease [Unknown]
  - Persecutory delusion [Recovered/Resolved]
  - Intentional product use issue [Unknown]
